FAERS Safety Report 18261792 (Version 5)
Quarter: 2020Q4

REPORT INFORMATION
  Report Type: Report from Study
  Country: KR (occurrence: KR)
  Receive Date: 20200914
  Receipt Date: 20201104
  Transmission Date: 20210113
  Serious: Yes (Hospitalization)
  Sender: FDA-Public Use
  Company Number: KR-EISAI MEDICAL RESEARCH-EC-2020-080070

PATIENT
  Age: 72 Year
  Sex: Female
  Weight: 52.9 kg

DRUGS (17)
  1. LENVATINIB [Suspect]
     Active Substance: LENVATINIB
     Route: 048
     Dates: start: 20200907
  2. NEURONTIN [Concomitant]
     Active Substance: GABAPENTIN
     Dates: start: 20200812
  3. PEMBROLIZUMAB. [Suspect]
     Active Substance: PEMBROLIZUMAB
     Route: 041
     Dates: start: 20200812, end: 20200812
  4. STILNOX [Concomitant]
     Active Substance: ZOLPIDEM TARTRATE
     Dates: start: 20200721, end: 20200817
  5. LENVATINIB [Suspect]
     Active Substance: LENVATINIB
     Route: 048
     Dates: start: 20200630, end: 20200901
  6. MECOBALAMIN [Concomitant]
     Active Substance: METHYLCOBALAMIN
     Dates: start: 20200812
  7. PEMBROLIZUMAB. [Suspect]
     Active Substance: PEMBROLIZUMAB
     Indication: ENDOMETRIAL CANCER
     Route: 041
     Dates: start: 20200608, end: 20200720
  8. CLAUDEL [Concomitant]
     Dates: start: 200001
  9. DEUSTIN [Concomitant]
     Dates: start: 200001
  10. CIRCADIN [Concomitant]
     Active Substance: MELATONIN
     Dates: start: 20200721, end: 20200817
  11. LENVATINIB [Suspect]
     Active Substance: LENVATINIB
     Indication: ENDOMETRIAL CANCER
     Route: 048
     Dates: start: 20200608, end: 20200622
  12. LETOPRA [Concomitant]
     Dates: start: 200001
  13. DIABEX [Concomitant]
     Active Substance: METFORMIN HYDROCHLORIDE
     Dates: start: 200001
  14. ULTRACET [Concomitant]
     Active Substance: ACETAMINOPHEN\TRAMADOL HYDROCHLORIDE
     Dates: start: 20200812
  15. NASERON [Concomitant]
     Active Substance: RAMOSETRON HYDROCHLORIDE
     Dates: start: 20200812, end: 20200816
  16. PEMBROLIZUMAB. [Suspect]
     Active Substance: PEMBROLIZUMAB
     Route: 041
     Dates: start: 20200903
  17. HERBEN [Concomitant]
     Active Substance: DILTIAZEM HYDROCHLORIDE
     Dates: start: 200001

REACTIONS (1)
  - Asthenia [Recovered/Resolved]

NARRATIVE: CASE EVENT DATE: 20200830
